FAERS Safety Report 6168991-9 (Version None)
Quarter: 2009Q2

REPORT INFORMATION
  Report Type: 
  Country: None (occurrence: None)
  Receive Date: 20090424
  Receipt Date: 20090424
  Transmission Date: 20091009
  Serious: Yes (Life-Threatening)
  Sender: FDA-Public Use
  Company Number: None

PATIENT
  Sex: Female

DRUGS (1)
  1. TOPIRAMATE [Suspect]
     Indication: ABNORMAL BEHAVIOUR
     Dosage: 50 MG BID PO
     Route: 048
     Dates: start: 20090408, end: 20090421

REACTIONS (3)
  - ANAPHYLACTIC REACTION [None]
  - CROSS SENSITIVITY REACTION [None]
  - PARAESTHESIA [None]
